FAERS Safety Report 18234042 (Version 2)
Quarter: 2021Q3

REPORT INFORMATION
  Report Type: Report from Study
  Country: ZA (occurrence: ZA)
  Receive Date: 20200904
  Receipt Date: 20210809
  Transmission Date: 20211014
  Serious: Yes (Other)
  Sender: FDA-Public Use
  Company Number: PHHY2019ZA059427

PATIENT
  Sex: Female

DRUGS (1)
  1. TUVIGIN [Suspect]
     Active Substance: FINGOLIMOD HYDROCHLORIDE
     Indication: RELAPSING-REMITTING MULTIPLE SCLEROSIS
     Dosage: 0.5 MG, QD
     Route: 048
     Dates: start: 20190222

REACTIONS (20)
  - Fatigue [Unknown]
  - Blood bicarbonate decreased [Unknown]
  - Vertebral osteophyte [Unknown]
  - Cauda equina syndrome [Unknown]
  - Central nervous system lesion [Not Recovered/Not Resolved]
  - Aspartate aminotransferase decreased [Unknown]
  - Facet joint syndrome [Unknown]
  - Compression fracture [Unknown]
  - Relapsing-remitting multiple sclerosis [Unknown]
  - Bilirubin conjugated decreased [Unknown]
  - Intervertebral disc protrusion [Unknown]
  - Radiculopathy [Unknown]
  - Osteochondrosis [Unknown]
  - Multiple sclerosis [Unknown]
  - Blood chloride increased [Unknown]
  - Osteoarthritis [Unknown]
  - Demyelination [Unknown]
  - Cerebellar atrophy [Not Recovered/Not Resolved]
  - White matter lesion [Unknown]
  - Perineurial cyst [Unknown]
